FAERS Safety Report 10844064 (Version 1)
Quarter: 2015Q1

REPORT INFORMATION
  Report Type: Spontaneous
  Country: BE (occurrence: BE)
  Receive Date: 20150220
  Receipt Date: 20150220
  Transmission Date: 20150721
  Serious: Yes (Death, Hospitalization, Other)
  Sender: FDA-Public Use
  Company Number: BE-BAUSCH-BL-2015-003192

PATIENT
  Age: 38 Year
  Sex: Female
  Weight: 65 kg

DRUGS (2)
  1. VENLAFAXINE [Suspect]
     Active Substance: VENLAFAXINE HYDROCHLORIDE
     Indication: PRODUCT USED FOR UNKNOWN INDICATION
  2. VERAPAMIL [Suspect]
     Active Substance: VERAPAMIL HYDROCHLORIDE

REACTIONS (10)
  - Atrioventricular block [Unknown]
  - Cardiogenic shock [Unknown]
  - Acute hepatic failure [Unknown]
  - Coma [Unknown]
  - Acute respiratory distress syndrome [Unknown]
  - Death [Fatal]
  - Seizure [Unknown]
  - Mydriasis [Unknown]
  - Acute kidney injury [Unknown]
  - Toxicity to various agents [Unknown]
